FAERS Safety Report 9918050 (Version 1)
Quarter: 2014Q1

REPORT INFORMATION
  Report Type: Spontaneous
  Country: AU (occurrence: AU)
  Receive Date: 20140223
  Receipt Date: 20140223
  Transmission Date: 20141002
  Serious: Yes (Hospitalization)
  Sender: FDA-Public Use
  Company Number: AU-009507513-1402AUS008859

PATIENT
  Age: 72 Year
  Sex: Female

DRUGS (2)
  1. PRINIVIL [Suspect]
     Route: 048
  2. CANDESARTAN CILEXETIL [Suspect]
     Route: 048

REACTIONS (1)
  - Angioedema [Unknown]
